FAERS Safety Report 11520106 (Version 1)
Quarter: 2015Q3

REPORT INFORMATION
  Report Type: Spontaneous
  Country: US (occurrence: US)
  Receive Date: 20150918
  Receipt Date: 20150918
  Transmission Date: 20151125
  Serious: No
  Sender: FDA-Public Use
  Company Number: US-RB-071598-14

PATIENT

DRUGS (3)
  1. VITAMINS [Concomitant]
     Active Substance: VITAMINS
     Indication: PRODUCT USED FOR UNKNOWN INDICATION
     Dosage: DOSE UNK, UNITS UNK, FREQUENCY UNK
     Route: 065
  2. MUCINEX MAXIMUM STRENGTH [Suspect]
     Active Substance: GUAIFENESIN
     Indication: CHRONIC OBSTRUCTIVE PULMONARY DISEASE
     Dosage: 1200MG. PATIENT WAS TAKING 1-1200MG IN MORNING AND A 600MG TABLET AT NIGHT.,FREQUENCY UNK
     Route: 065
  3. MUCINEX MAXIMUM STRENGTH [Suspect]
     Active Substance: GUAIFENESIN
     Dosage: 1200MG. TOOK PRODUCT LAST ON 01-DEC-2014.,QD
     Route: 065

REACTIONS (3)
  - Product use issue [Recovered/Resolved]
  - Condition aggravated [Recovered/Resolved]
  - Incorrect drug administration duration [Recovered/Resolved]
